FAERS Safety Report 4715250-4 (Version None)
Quarter: 2005Q3

REPORT INFORMATION
  Report Type: 
  Country: None (occurrence: None)
  Receive Date: 20050715
  Receipt Date: 20050519
  Transmission Date: 20060218
  Serious: Yes (Hospitalization)
  Sender: FDA-Public Use
  Company Number: US-SANOFI-SYNTHELABO-F01200500774

PATIENT
  Sex: Male

DRUGS (10)
  1. OXALIPLATIN [Suspect]
     Indication: COLORECTAL CANCER METASTATIC
     Route: 042
     Dates: start: 20040928, end: 20040928
  2. FLUOROURACIL [Suspect]
     Dosage: 832 MG IV BOLUS AND 1248 MG IV CONTINUOUS INFUSION
     Route: 042
     Dates: start: 20040928, end: 20040929
  3. LEUCOVORIN [Suspect]
     Route: 042
     Dates: start: 20040928, end: 20040929
  4. AVASTIN [Suspect]
     Route: 042
     Dates: start: 20040928, end: 20040928
  5. ERLOTINIB [Suspect]
     Route: 048
     Dates: start: 20040816, end: 20041005
  6. THORAZINE [Concomitant]
     Dosage: UNK
     Route: 065
     Dates: start: 20040908
  7. OXYCONTIN [Concomitant]
     Dosage: UNK
     Route: 065
     Dates: start: 20040812
  8. SENNA [Concomitant]
     Dosage: UNK
     Route: 065
     Dates: start: 20040812
  9. DULCOLAX [Concomitant]
     Dosage: UNK
     Route: 065
     Dates: start: 20040812
  10. MEGACE [Concomitant]
     Dosage: UNK
     Route: 065
     Dates: start: 20040816

REACTIONS (13)
  - ACTIVATED PARTIAL THROMBOPLASTIN TIME PROLONGED [None]
  - BACK PAIN [None]
  - BLOOD ALBUMIN DECREASED [None]
  - BLOOD ALKALINE PHOSPHATASE INCREASED [None]
  - BLOOD CALCIUM DECREASED [None]
  - DECREASED APPETITE [None]
  - DIZZINESS POSTURAL [None]
  - FAILURE TO THRIVE [None]
  - FATIGUE [None]
  - HICCUPS [None]
  - PROTEIN TOTAL DECREASED [None]
  - PROTHROMBIN TIME PROLONGED [None]
  - WHITE BLOOD CELL COUNT INCREASED [None]
